FAERS Safety Report 19642158 (Version 4)
Quarter: 2021Q3

REPORT INFORMATION
  Report Type: Report from Study
  Country: FR (occurrence: FR)
  Receive Date: 20210730
  Receipt Date: 20210917
  Transmission Date: 20211014
  Serious: Yes (Other)
  Sender: FDA-Public Use
  Company Number: FR-TAKEDA-FR201516859

PATIENT
  Age: 4 Year
  Sex: Male
  Weight: 28.5 kg

DRUGS (38)
  1. CETIRIZINE [Concomitant]
     Active Substance: CETIRIZINE HYDROCHLORIDE
     Indication: PREMEDICATION
     Dosage: 10 G, OTHER (PER HOUR)
     Route: 065
     Dates: start: 200705
  2. RISPERIDONE. [Concomitant]
     Active Substance: RISPERIDONE
     Indication: ABNORMAL BEHAVIOUR
     Dosage: UNK
     Route: 048
     Dates: start: 201107, end: 201408
  3. POLARAMINE [Concomitant]
     Active Substance: DEXCHLORPHENIRAMINE MALEATE
     Indication: PREMEDICATION
     Dosage: UNK
     Route: 048
     Dates: start: 201011, end: 20111020
  4. DESLORATADINE. [Concomitant]
     Active Substance: DESLORATADINE
     Indication: PREMEDICATION
     Dosage: UNK
     Route: 048
     Dates: start: 20111020
  5. MOVICOL [Concomitant]
     Active Substance: POLYETHYLENE GLYCOL 3350\POTASSIUM CHLORIDE\SODIUM BICARBONATE\SODIUM CHLORIDE
     Indication: CONSTIPATION
     Dosage: UNK
     Route: 048
     Dates: start: 2012
  6. IDURSULFASE [Suspect]
     Active Substance: IDURSULFASE
     Indication: MUCOPOLYSACCHARIDOSIS II
     Dosage: 0.5 MG/KG, 1X/WEEK
     Route: 041
     Dates: start: 20070108
  7. IDURSULFASE [Suspect]
     Active Substance: IDURSULFASE
     Dosage: 0.58 MILLIGRAM/KILOGRAM, 1/WEEK
     Route: 042
     Dates: start: 20121018
  8. RISPERIDONE. [Concomitant]
     Active Substance: RISPERIDONE
     Dosage: UNK
     Route: 048
     Dates: start: 200911, end: 201107
  9. IDURSULFASE [Suspect]
     Active Substance: IDURSULFASE
     Dosage: 0.64 MILLIGRAM/KILOGRAM, 1/WEEK
     Route: 042
     Dates: start: 20101021
  10. IDURSULFASE [Suspect]
     Active Substance: IDURSULFASE
     Dosage: 0.63 MILLIGRAM/KILOGRAM, 1/WEEK
     Route: 042
     Dates: start: 20111020
  11. IDURSULFASE [Suspect]
     Active Substance: IDURSULFASE
     Dosage: UNK
     Route: 042
  12. BUDESONIDE. [Concomitant]
     Active Substance: BUDESONIDE
     Indication: RESPIRATORY DISORDER
     Dosage: UNK
     Route: 055
     Dates: start: 2008, end: 20090905
  13. NASONEX [Concomitant]
     Active Substance: MOMETASONE FUROATE
     Indication: NASAL OBSTRUCTION
     Dosage: UNK
     Route: 045
     Dates: start: 20151015
  14. CIRCADIN [Concomitant]
     Active Substance: MELATONIN
     Indication: INSOMNIA
     Dosage: UNK
     Route: 048
     Dates: start: 201012, end: 201406
  15. ZINNAT [CEFUROXIME AXETIL] [Concomitant]
     Active Substance: CEFUROXIME
     Indication: RESPIRATORY TRACT INFECTION
     Dosage: UNK
     Route: 050
     Dates: start: 201311, end: 201312
  16. IDURSULFASE [Suspect]
     Active Substance: IDURSULFASE
     Dosage: 0.6 MILLIGRAM/KILOGRAM, 1/WEEK
     Route: 042
     Dates: start: 20070201
  17. IDURSULFASE [Suspect]
     Active Substance: IDURSULFASE
     Dosage: 0.5 MILLIGRAM/KILOGRAM, 1/WEEK
     Route: 042
     Dates: start: 20091105
  18. IDURSULFASE [Suspect]
     Active Substance: IDURSULFASE
     Dosage: 0.56 MILLIGRAM/KILOGRAM, 1/WEEK
     Route: 042
     Dates: start: 20070326
  19. PREDNISOLONE. [Concomitant]
     Active Substance: PREDNISOLONE
     Indication: PAIN
     Dosage: UNK
     Route: 048
     Dates: start: 200702, end: 20090219
  20. CETIRIZINE [Concomitant]
     Active Substance: CETIRIZINE HYDROCHLORIDE
     Dosage: UNK
     Route: 048
     Dates: start: 20070212, end: 20090905
  21. DESLORATADINE. [Concomitant]
     Active Substance: DESLORATADINE
     Dosage: UNK
     Route: 048
     Dates: start: 20120423
  22. VAXIGRIP [Concomitant]
     Active Substance: INFLUENZA VIRUS VACCINE
     Indication: PROPHYLAXIS
     Dosage: UNK
     Route: 042
     Dates: start: 20131101, end: 20131101
  23. AMITRIPTYLINE [Concomitant]
     Active Substance: AMITRIPTYLINE
     Indication: DEPRESSION
     Dosage: UNK
     Route: 048
     Dates: start: 200911
  24. PREDNISOLONE. [Concomitant]
     Active Substance: PREDNISOLONE
     Indication: PREMEDICATION
     Dosage: UNK
     Route: 048
     Dates: start: 20070212
  25. SALMETEROL [Concomitant]
     Active Substance: SALMETEROL
     Indication: RESPIRATORY DISORDER
     Dosage: UNK
     Route: 055
     Dates: start: 20060323, end: 2008
  26. ENALAPRIL [Concomitant]
     Active Substance: ENALAPRIL
     Indication: ENDOCARDITIS PROPHYLAXIS
     Dosage: UNK
     Route: 048
     Dates: start: 20050407
  27. IPRATROPIUM BROMIDE. [Concomitant]
     Active Substance: IPRATROPIUM BROMIDE
     Indication: RESPIRATORY DISORDER
     Dosage: UNK
     Route: 055
     Dates: start: 2008, end: 20090905
  28. KEPPRA [Concomitant]
     Active Substance: LEVETIRACETAM
     Indication: EPILEPSY
     Dosage: UNK
     Route: 065
     Dates: start: 20200309
  29. IDURSULFASE [Suspect]
     Active Substance: IDURSULFASE
     Dosage: 0.53 MILLIGRAM/KILOGRAM, 1/WEEK
     Route: 042
     Dates: start: 20071206
  30. PREDNISOLONE. [Concomitant]
     Active Substance: PREDNISOLONE
     Dosage: UNK
     Route: 048
     Dates: start: 20090225, end: 20090905
  31. MELATONINE [Concomitant]
     Active Substance: MELATONIN
     Indication: PRODUCT USED FOR UNKNOWN INDICATION
     Dosage: 2 MG, UNKNOWN
     Route: 065
     Dates: start: 201012
  32. BECLOMETASONE [Concomitant]
     Active Substance: BECLOMETHASONE DIPROPIONATE
     Indication: RESPIRATORY DISORDER
     Dosage: UNK
     Route: 055
     Dates: start: 200302, end: 2008
  33. UVEDOSE [Concomitant]
     Active Substance: CHOLECALCIFEROL
     Indication: VITAMIN D DEFICIENCY
     Dosage: UNK
     Route: 048
     Dates: start: 20121018, end: 201304
  34. PREDNISOLONE. [Concomitant]
     Active Substance: PREDNISOLONE
     Dosage: UNK, UNKNOWN
     Route: 065
     Dates: start: 200705
  35. CETIRIZINE [Concomitant]
     Active Substance: CETIRIZINE HYDROCHLORIDE
     Dosage: UNK
     Route: 048
     Dates: start: 20100224
  36. UVEDOSE [Concomitant]
     Active Substance: CHOLECALCIFEROL
     Dosage: UNK
     Route: 048
     Dates: start: 20151015
  37. VENTOLINE [SALBUTAMOL] [Concomitant]
     Active Substance: ALBUTEROL SULFATE
     Indication: ASTHMA
     Dosage: UNK
     Route: 055
     Dates: start: 201210, end: 201211
  38. VENTOLINE [SALBUTAMOL] [Concomitant]
     Active Substance: ALBUTEROL SULFATE
     Dosage: UNK
     Route: 055
     Dates: start: 201311, end: 201312

REACTIONS (8)
  - Laryngospasm [Recovered/Resolved]
  - Vomiting [Recovered/Resolved]
  - Muscle contracture [Recovered/Resolved]
  - Cyanosis [Recovered/Resolved]
  - Infusion related reaction [Recovered/Resolved]
  - Tremor [Recovered/Resolved]
  - Cough [Recovered/Resolved]
  - Asphyxia [Recovered/Resolved]

NARRATIVE: CASE EVENT DATE: 20070208
